FAERS Safety Report 8598416-5 (Version None)
Quarter: 2012Q3

REPORT INFORMATION
  Report Type: 
  Country: None (occurrence: None)
  Receive Date: 20120816
  Receipt Date: 20120810
  Transmission Date: 20120928
  Serious: Yes (Other)
  Sender: FDA-Public Use
  Company Number: US-BAYER-2012-082525

PATIENT
  Sex: Female

DRUGS (3)
  1. MIRENA [Suspect]
     Dosage: 20 MCG/24HR, CONT
     Route: 015
  2. MIRENA [Suspect]
     Dosage: 20 MCG/24HR, CONT
     Route: 015
     Dates: start: 20120621
  3. MIRENA [Suspect]
     Dosage: 20 MCG/24HR, CONT
     Route: 015

REACTIONS (4)
  - FEELING ABNORMAL [None]
  - VAGINAL HAEMORRHAGE [None]
  - DEVICE DISLOCATION [None]
  - FRUSTRATION [None]
